FAERS Safety Report 6450079-0 (Version None)
Quarter: 2009Q4

REPORT INFORMATION
  Report Type: 
  Country: None (occurrence: None)
  Receive Date: 20091123
  Receipt Date: 20091118
  Transmission Date: 20100525
  Serious: Yes (Life-Threatening, Hospitalization)
  Sender: FDA-Public Use
  Company Number: AU-ASTRAZENECA-2008AP04070

PATIENT
  Age: 75 Year
  Sex: Male

DRUGS (5)
  1. CRESTOR [Suspect]
     Indication: LIPIDS ABNORMAL
     Dosage: 10 MG
     Route: 048
  2. CRESTOR [Suspect]
     Route: 048
  3. LIPITOR [Suspect]
     Dosage: 40 MG
     Route: 065
  4. SIMVASTATIN [Suspect]
  5. GEMFIBROZIL [Suspect]

REACTIONS (12)
  - ABDOMINAL PAIN [None]
  - CHROMATURIA [None]
  - CONSTIPATION [None]
  - DECREASED APPETITE [None]
  - HEPATIC FUNCTION ABNORMAL [None]
  - LIVER FUNCTION TEST ABNORMAL [None]
  - MYALGIA [None]
  - MYOGLOBINURIA [None]
  - PRURITUS [None]
  - RENAL FAILURE ACUTE [None]
  - RHABDOMYOLYSIS [None]
  - WRONG DRUG ADMINISTERED [None]
